FAERS Safety Report 13535335 (Version 3)
Quarter: 2017Q2

REPORT INFORMATION
  Report Type: Report from Study
  Country: CO (occurrence: CO)
  Receive Date: 20170511
  Receipt Date: 20170620
  Transmission Date: 20170830
  Serious: Yes (Death, Life-Threatening, Hospitalization, Other)
  Sender: FDA-Public Use
  Company Number: CO-AMGEN-COLSL2017070411

PATIENT
  Age: 34 Year
  Sex: Male

DRUGS (1)
  1. KYPROLIS [Suspect]
     Active Substance: CARFILZOMIB
     Indication: PLASMA CELL MYELOMA
     Dosage: UNK
     Route: 065
     Dates: start: 20170220, end: 20170602

REACTIONS (4)
  - Infarction [Fatal]
  - Cardio-respiratory arrest [Fatal]
  - Pain in extremity [Recovered/Resolved]
  - Coccydynia [Recovered/Resolved]

NARRATIVE: CASE EVENT DATE: 20170414
